FAERS Safety Report 4854292-5 (Version None)
Quarter: 2005Q4

REPORT INFORMATION
  Report Type: 
  Country: None (occurrence: None)
  Receive Date: 20051215
  Receipt Date: 20051206
  Transmission Date: 20060501
  Serious: Yes (Other)
  Sender: FDA-Public Use
  Company Number: US-SOLVAY-00205004056

PATIENT
  Age: 43 Year
  Sex: Female

DRUGS (1)
  1. ESTROGEL [Suspect]
     Indication: OESTROGEN REPLACEMENT THERAPY
     Dosage: DAILY DOSE: 1.25 GRAM(S)
     Route: 062

REACTIONS (2)
  - CONVULSION [None]
  - MIGRAINE [None]
